FAERS Safety Report 5206696-9 (Version None)
Quarter: 2007Q1

REPORT INFORMATION
  Report Type: 
  Country: None (occurrence: None)
  Receive Date: 20070109
  Receipt Date: 20061114
  Transmission Date: 20070707
  Serious: Yes (Life-Threatening)
  Sender: FDA-Public Use
  Company Number: JPKYO-S-20060038

PATIENT
  Sex: Female

DRUGS (2)
  1. NAVELBINE [Suspect]
     Indication: BREAST CANCER METASTATIC
     Dates: start: 20060901
  2. HERCEPTIN [Concomitant]

REACTIONS (5)
  - FALL [None]
  - HAEMATOMA [None]
  - METASTASES TO CENTRAL NERVOUS SYSTEM [None]
  - MOVEMENT DISORDER [None]
  - NEUROPATHY [None]
